FAERS Safety Report 5215806-9 (Version None)
Quarter: 2007Q1

REPORT INFORMATION
  Report Type: 
  Country: None (occurrence: None)
  Receive Date: 20070123
  Receipt Date: 20070116
  Transmission Date: 20070707
  Serious: Yes (Other)
  Sender: FDA-Public Use
  Company Number: JP-JNJFOC-20061205282

PATIENT
  Age: 90 Year
  Sex: Female

DRUGS (2)
  1. ITRIZOLE [Suspect]
     Indication: ORAL CANDIDIASIS
     Route: 048
     Dates: start: 20061027, end: 20061109
  2. PURSENNID [Concomitant]
     Route: 065

REACTIONS (1)
  - ANGINA PECTORIS [None]
